FAERS Safety Report 24952621 (Version 2)
Quarter: 2025Q2

REPORT INFORMATION
  Report Type: Report from Study
  Country: ZA (occurrence: ZA)
  Receive Date: 20250210
  Receipt Date: 20250402
  Transmission Date: 20250717
  Serious: Yes (Other)
  Sender: TAKEDA
  Company Number: ZA-TAKEDA-2021TUS050692

PATIENT
  Sex: Male

DRUGS (1)
  1. VEDOLIZUMAB [Suspect]
     Active Substance: VEDOLIZUMAB
     Indication: Colitis ulcerative

REACTIONS (4)
  - Prostate cancer [Unknown]
  - Inappropriate schedule of product administration [Recovered/Resolved]
  - Abdominal pain upper [Unknown]
  - Arthritis [Unknown]
